FAERS Safety Report 20755762 (Version 3)
Quarter: 2022Q2

REPORT INFORMATION
  Report Type: Spontaneous
  Country: US (occurrence: US)
  Receive Date: 20220427
  Receipt Date: 20220526
  Transmission Date: 20220720
  Serious: Yes (Other)
  Sender: FDA-Public Use
  Company Number: US-PFIZER INC-202200458123

PATIENT
  Age: 87 Year
  Sex: Female

DRUGS (2)
  1. RETACRIT [Suspect]
     Active Substance: EPOETIN ALFA-EPBX
     Dosage: 40000 IU, CYCLIC (EVERY 4 WEEKS)
  2. RETACRIT [Suspect]
     Active Substance: EPOETIN ALFA-EPBX
     Dosage: 40000 IU, CYCLIC (EVERY 2 WEEKS)
     Dates: start: 20220506

REACTIONS (6)
  - Blindness [Unknown]
  - Haemoglobin decreased [Unknown]
  - Asthenia [Unknown]
  - Renal disorder [Unknown]
  - Cerebral disorder [Unknown]
  - Off label use [Unknown]
